FAERS Safety Report 9328394 (Version 1)
Quarter: 2013Q2

REPORT INFORMATION
  Report Type: Spontaneous
  Country: US (occurrence: US)
  Receive Date: 20130604
  Receipt Date: 20130604
  Transmission Date: 20140414
  Serious: Yes (Life-Threatening, Hospitalization)
  Sender: FDA-Public Use
  Company Number: US-SANOFI-AVENTIS-2012SA049384

PATIENT
  Age: 71 Year
  Sex: Male
  Weight: 97.5 kg

DRUGS (15)
  1. LANTUS [Suspect]
     Indication: DIABETES MELLITUS
     Dosage: DOSE:50 UNIT(S)
     Route: 058
     Dates: start: 200506, end: 2012
  2. LANTUS [Suspect]
     Indication: DIABETES MELLITUS
     Dosage: DOSE:40 UNIT(S)
     Route: 058
     Dates: start: 2012
  3. SOLOSTAR [Suspect]
     Indication: DIABETES MELLITUS
  4. SOLOSTAR [Suspect]
     Indication: DIABETES MELLITUS
  5. NOVOLOG [Suspect]
     Dosage: INJECT ONE UNIT FOR EVERY 5-6 CARBS PRIOR TO EACH MEAL. DOSE:1 UNIT(S)
     Route: 065
  6. MINOXIDIL [Suspect]
     Indication: BLOOD PRESSURE
     Route: 065
     Dates: end: 20120716
  7. TRICOR [Concomitant]
     Dosage: AT DINNER TIME
     Route: 048
  8. HYDROCHLOROTHIAZIDE/LOSARTAN POTASSIUM [Concomitant]
     Dosage: 125/25MG TABLET AT BREAKFAST.
     Route: 048
  9. BENAZEPRIL [Concomitant]
     Dosage: AT BREAKFAST
     Route: 048
  10. SIMVASTATIN [Concomitant]
     Dosage: TOOK HALF OF 40MG TABLET AT BREAKFAST.
     Route: 048
  11. CARVEDILOL [Concomitant]
     Dosage: ONE AT BREAKFAST AND ONE AT BEDTIME
     Route: 048
  12. AMLODIPINE BESILATE [Concomitant]
     Dosage: AT BREAKFAST
     Route: 048
  13. FISH OIL [Concomitant]
     Dosage: AT BREAKFAST
     Route: 048
  14. ASPIRIN [Concomitant]
     Dosage: AT BEDTIME.
     Route: 048
  15. MULTIVITAMINS [Concomitant]
     Dosage: ONE TABLET AT BREAKFAST.
     Route: 048

REACTIONS (8)
  - Hypoglycaemia [Unknown]
  - Road traffic accident [Unknown]
  - Hypoglycaemic unconsciousness [Unknown]
  - Laceration [Unknown]
  - Blood pressure decreased [Recovered/Resolved]
  - Dizziness [Recovered/Resolved]
  - Disorientation [Recovered/Resolved]
  - Weight decreased [Unknown]
